FAERS Safety Report 6082338-8 (Version None)
Quarter: 2009Q1

REPORT INFORMATION
  Report Type: 
  Country: None (occurrence: None)
  Receive Date: 20090218
  Receipt Date: 20090206
  Transmission Date: 20090719
  Serious: Yes (Hospitalization)
  Sender: FDA-Public Use
  Company Number: FR-ROCHE-613631

PATIENT
  Sex: Male

DRUGS (3)
  1. RIVOTRIL [Suspect]
     Indication: DRUG USE FOR UNKNOWN INDICATION
     Dosage: STRENGTH AND FORMULATION: 1 DOSE.
     Route: 065
     Dates: start: 20081223, end: 20081223
  2. XYREM [Suspect]
     Indication: DRUG USE FOR UNKNOWN INDICATION
     Route: 065
     Dates: start: 20081127
  3. XYREM [Suspect]
     Route: 065
     Dates: start: 20081203, end: 20081223

REACTIONS (1)
  - CARDIO-RESPIRATORY ARREST [None]
